FAERS Safety Report 8078687-4 (Version None)
Quarter: 2012Q1

REPORT INFORMATION
  Report Type: 
  Country: None (occurrence: None)
  Receive Date: 20120124
  Receipt Date: 20120117
  Transmission Date: 20120608
  Serious: Yes (Other)
  Sender: FDA-Public Use
  Company Number: 2012MA000195

PATIENT
  Age: 47 Year
  Sex: Male

DRUGS (5)
  1. LOSARTAN POTASSIUM TABLETS USP, 100MG (AMPL) (LOSARTAN) [Suspect]
     Indication: HYPERTENSION
     Dosage: 300 MG;
  2. SIMVASTATIN [Concomitant]
  3. NOVORAPID [Concomitant]
  4. INSULIN [Concomitant]
  5. METFORMIN HCL [Concomitant]

REACTIONS (4)
  - RASH ERYTHEMATOUS [None]
  - PRODUCT SUBSTITUTION ISSUE [None]
  - DERMATITIS ALLERGIC [None]
  - RASH PAPULAR [None]
